FAERS Safety Report 10674807 (Version 3)
Quarter: 2017Q3

REPORT INFORMATION
  Report Type: Report from Study
  Country: PT (occurrence: PT)
  Receive Date: 20141224
  Receipt Date: 20170725
  Transmission Date: 20171127
  Serious: Yes (Congenital Anomaly)
  Sender: FDA-Public Use
  Company Number: PT-JNJFOC-20141201803

PATIENT
  Age: 2 Month

DRUGS (1)
  1. STELARA [Suspect]
     Active Substance: USTEKINUMAB
     Indication: PSORIASIS
     Dosage: FATHER^S DOSING
     Route: 064
     Dates: start: 201005, end: 201406

REACTIONS (1)
  - Spina bifida occulta [Not Recovered/Not Resolved]

NARRATIVE: CASE EVENT DATE: 20141110
